FAERS Safety Report 23475921 (Version 1)
Quarter: 2024Q1

REPORT INFORMATION
  Report Type: Report from Study
  Country: US (occurrence: US)
  Receive Date: 20240204
  Receipt Date: 20240204
  Transmission Date: 20240410
  Serious: No
  Sender: FDA-Public Use
  Company Number: US-EXELIXIS-CABO-23061344

PATIENT
  Sex: Female

DRUGS (4)
  1. CABOMETYX [Suspect]
     Active Substance: CABOZANTINIB S-MALATE
     Indication: Leiomyosarcoma
     Dosage: 60 MG
     Dates: start: 20230216
  2. LEVOTHYROXINE [Concomitant]
     Active Substance: LEVOTHYROXINE\LEVOTHYROXINE SODIUM
  3. ELIQUIS [Concomitant]
     Active Substance: APIXABAN
  4. Calcium oyster shell [Concomitant]

REACTIONS (3)
  - Adverse drug reaction [Unknown]
  - Stomatitis [Unknown]
  - Off label use [Unknown]
